FAERS Safety Report 4478819-0 (Version None)
Quarter: 2004Q3

REPORT INFORMATION
  Report Type: 
  Country: None (occurrence: None)
  Receive Date: 20040923
  Receipt Date: 20040720
  Transmission Date: 20050211
  Serious: No
  Sender: FDA-Public Use
  Company Number: USA040773213

PATIENT
  Age: 66 Year
  Sex: Female

DRUGS (7)
  1. FORTEO [Suspect]
     Indication: OSTEOPOROSIS
     Dates: start: 20040501
  2. PROTONIX [Concomitant]
  3. DIGOXIN [Concomitant]
  4. PREMARIN [Concomitant]
  5. QUININE [Concomitant]
  6. AMITRIPTYLINE HCL [Concomitant]
  7. CODEINE W/PARACETAMOL [Concomitant]

REACTIONS (1)
  - URTICARIA [None]
